FAERS Safety Report 5509789-1 (Version None)
Quarter: 2007Q4

REPORT INFORMATION
  Report Type: 
  Country: None (occurrence: None)
  Receive Date: 20071107
  Receipt Date: 20071107
  Transmission Date: 20080405
  Serious: Yes (Hospitalization)
  Sender: FDA-Public Use
  Company Number: None

PATIENT
  Age: 82 Year
  Sex: Male

DRUGS (2)
  1. ATENOLOL [Suspect]
     Indication: CORONARY ARTERY DISEASE
     Dosage: 25MG EVERY DAY PO
     Route: 048
     Dates: start: 20070620, end: 20070731
  2. OXYBUTYNIN CHLORIDE [Suspect]
     Indication: MICTURITION DISORDER
     Dosage: 5MG BID PO
     Route: 048
     Dates: start: 20070620, end: 20070801

REACTIONS (3)
  - BRADYCARDIA [None]
  - CONFUSIONAL STATE [None]
  - NORMAL PRESSURE HYDROCEPHALUS [None]
